FAERS Safety Report 5921942-1 (Version None)
Quarter: 2008Q4

REPORT INFORMATION
  Report Type: 
  Country: None (occurrence: None)
  Receive Date: 20081017
  Receipt Date: 20081008
  Transmission Date: 20090506
  Serious: Yes (Death, Hospitalization, Other)
  Sender: FDA-Public Use
  Company Number: US-JNJFOC-20061003248

PATIENT
  Sex: Male
  Weight: 81.65 kg

DRUGS (11)
  1. REMICADE [Suspect]
     Indication: CROHN'S DISEASE
     Route: 042
  2. MERCAPTOPURINE [Suspect]
     Dosage: DECREASED TO 50 MG/DAY AFTER 6-TG LEVELS WERE FOUND TO BE ELEVATED
  3. MERCAPTOPURINE [Suspect]
  4. MERCAPTOPURINE [Suspect]
     Indication: CROHN'S DISEASE
  5. PREDNISONE TAB [Suspect]
     Indication: CROHN'S DISEASE
  6. ASACOL [Concomitant]
  7. NEXIUM [Concomitant]
     Indication: GASTROOESOPHAGEAL REFLUX DISEASE
  8. FOLIC ACID [Concomitant]
  9. CALCIUM [Concomitant]
  10. SINGULAIR [Concomitant]
  11. NYSTATIN [Concomitant]
     Indication: DIARRHOEA

REACTIONS (6)
  - HEPATOSPLENIC T-CELL LYMPHOMA [None]
  - LUNG NEOPLASM [None]
  - MUSCLE INJURY [None]
  - NERVOUS SYSTEM DISORDER [None]
  - NEUROPATHY PERIPHERAL [None]
  - POSTOPERATIVE ABSCESS [None]
